FAERS Safety Report 4265661-9 (Version None)
Quarter: 2004Q1

REPORT INFORMATION
  Report Type: 
  Country: None (occurrence: None)
  Receive Date: 20040107
  Receipt Date: 20031114
  Transmission Date: 20041129
  Serious: Yes (Other)
  Sender: FDA-Public Use
  Company Number: US-GLAXOSMITHKLINE-A0439833A

PATIENT
  Age: 60 Year
  Sex: Female

DRUGS (1)
  1. PARNATE [Suspect]
     Indication: DEPRESSION
     Dosage: 75MG PER DAY
     Route: 048

REACTIONS (5)
  - COLITIS [None]
  - FOOD INTERACTION [None]
  - INCONTINENCE [None]
  - URTICARIA [None]
  - WEIGHT INCREASED [None]
